FAERS Safety Report 25831613 (Version 3)
Quarter: 2025Q4

REPORT INFORMATION
  Report Type: Spontaneous
  Country: US (occurrence: US)
  Receive Date: 20250922
  Receipt Date: 20251103
  Transmission Date: 20260117
  Serious: No
  Sender: ROCHE
  Company Number: US-ROCHE-10000391673

PATIENT
  Sex: Female

DRUGS (3)
  1. XOLAIR PFS [Suspect]
     Active Substance: OMALIZUMAB
     Indication: Idiopathic urticaria
     Dosage: STRENGTH 150 MG/ML
     Route: 058
     Dates: start: 202410
  2. XOLAIR PFS [Suspect]
     Active Substance: OMALIZUMAB
     Indication: Asthma
     Dosage: DOSE 2 SYRINGES, STRENGTH 150 MG/ML
     Route: 058
     Dates: start: 202107
  3. XOLAIR PFS [Suspect]
     Active Substance: OMALIZUMAB
     Route: 058
     Dates: start: 20210715

REACTIONS (6)
  - Asthma [Unknown]
  - Illness [Unknown]
  - Bronchitis [Unknown]
  - Off label use [Unknown]
  - Product dose omission issue [Unknown]
  - Food allergy [Unknown]
